FAERS Safety Report 17668464 (Version 1)
Quarter: 2020Q2

REPORT INFORMATION
  Report Type: Spontaneous
  Country: CN (occurrence: CN)
  Receive Date: 20200415
  Receipt Date: 20200415
  Transmission Date: 20200713
  Serious: Yes (Hospitalization)
  Sender: FDA-Public Use
  Company Number: CN-009507513-2004CHN003439

PATIENT
  Age: 43 Year
  Sex: Male
  Weight: 55.4 kg

DRUGS (1)
  1. KEYTRUDA [Suspect]
     Active Substance: PEMBROLIZUMAB
     Indication: RENAL CANCER
     Dosage: 200 MILLIGRAM, VD, D1 FOR IMMUNOTHERAPY (1 COURSE OF TREATMENT)
     Route: 041
     Dates: start: 20200228, end: 20200228

REACTIONS (2)
  - Hepatic function abnormal [Recovering/Resolving]
  - Immune-mediated adverse reaction [Unknown]

NARRATIVE: CASE EVENT DATE: 2020
